FAERS Safety Report 8295027-6 (Version None)
Quarter: 2012Q2

REPORT INFORMATION
  Report Type: 
  Country: None (occurrence: None)
  Receive Date: 20120418
  Receipt Date: 20120411
  Transmission Date: 20120825
  Serious: Yes (Death)
  Sender: FDA-Public Use
  Company Number: US-ELI_LILLY_AND_COMPANY-US201204003853

PATIENT
  Sex: Male

DRUGS (6)
  1. NEULASTA [Concomitant]
     Dosage: UNK, UNKNOWN
  2. ALOXI [Concomitant]
     Dosage: UNK, UNKNOWN
  3. ALIMTA [Suspect]
     Indication: LUNG NEOPLASM MALIGNANT
     Dosage: 500 MG, EVERY 3 - 4 WEEKS
     Dates: start: 20111111, end: 20120323
  4. AVASTIN [Concomitant]
     Dosage: UNK, UNKNOWN
  5. PLATINUM [Concomitant]
     Dosage: UNK, UNKNOWN
  6. CARBO [Concomitant]
     Dosage: UNK, UNKNOWN

REACTIONS (1)
  - DEATH [None]
